FAERS Safety Report 17861988 (Version 1)
Quarter: 2020Q2

REPORT INFORMATION
  Report Type: Report from Study
  Country: CO (occurrence: CO)
  Receive Date: 20200604
  Receipt Date: 20200604
  Transmission Date: 20200714
  Serious: Yes (Hospitalization)
  Sender: FDA-Public Use
  Company Number: NVSC2019CO091275

PATIENT

DRUGS (1)
  1. JADENU [Suspect]
     Active Substance: DEFERASIROX
     Indication: THALASSAEMIA BETA
     Dosage: 2 DF, Q24H
     Route: 065

REACTIONS (5)
  - Chills [Unknown]
  - Lower respiratory tract infection bacterial [Unknown]
  - Haemoglobin decreased [Unknown]
  - Nausea [Unknown]
  - Dizziness [Unknown]
